FAERS Safety Report 8879133 (Version 1)
Quarter: 2012Q4

REPORT INFORMATION
  Report Type: Spontaneous
  Country: GB (occurrence: None)
  Receive Date: 20121025
  Receipt Date: 20121025
  Transmission Date: 20130627
  Serious: Yes (Other)
  Sender: FDA-Public Use
  Company Number: FK201203134

PATIENT
  Age: 66 Year
  Sex: Male

DRUGS (6)
  1. IRINOTECAN [Suspect]
  2. FLUOROURACIL [Suspect]
  3. LEUCOVORIN CALCIUM [Suspect]
  4. ELOXATIN [Suspect]
     Route: 042
     Dates: start: 20070222, end: 20070913
  5. DEXAMETHASONE (DEXAMETHASONE) [Concomitant]
  6. ONDANSETRON (ONDANSETRON) [Concomitant]

REACTIONS (4)
  - Peripheral sensory neuropathy [None]
  - Epistaxis [None]
  - Lethargy [None]
  - Upper respiratory tract infection [None]
